FAERS Safety Report 7287733-7 (Version None)
Quarter: 2011Q1

REPORT INFORMATION
  Report Type: 
  Country: None (occurrence: None)
  Receive Date: 20110211
  Receipt Date: 20110202
  Transmission Date: 20110831
  Serious: Yes (Hospitalization)
  Sender: FDA-Public Use
  Company Number: MA-SANOFI-AVENTIS-2011SA007519

PATIENT
  Age: 82 Year
  Sex: Male

DRUGS (5)
  1. TRAVATAN [Suspect]
     Indication: GLAUCOMA
     Route: 031
  2. AMLODIPINE [Concomitant]
     Indication: HYPERTENSION
     Route: 048
  3. METEOSPASMYL [Concomitant]
     Route: 048
  4. XATRAL [Suspect]
     Indication: BENIGN PROSTATIC HYPERPLASIA
     Route: 048
  5. CARDIOASPIRINE [Concomitant]
     Indication: HYPERTENSION
     Route: 048

REACTIONS (1)
  - THROMBOCYTOPENIA [None]
